FAERS Safety Report 9418122 (Version 1)
Quarter: 2013Q3

REPORT INFORMATION
  Report Type: Spontaneous
  Country: IT (occurrence: IT)
  Receive Date: 20130724
  Receipt Date: 20130724
  Transmission Date: 20140515
  Serious: Yes (Hospitalization)
  Sender: FDA-Public Use
  Company Number: IT-VERTEX PHARMACEUTICALS INC-2013-008207

PATIENT
  Age: 48 Year
  Sex: Male

DRUGS (3)
  1. INCIVO [Suspect]
     Indication: HEPATIC CIRRHOSIS
     Dosage: 2.25 G, QD, TABLET
     Route: 048
     Dates: start: 20130411, end: 20130620
  2. PEGASYS [Suspect]
     Indication: HEPATIC CIRRHOSIS
     Dosage: 180 ?G, QW
     Dates: start: 20130411, end: 20130613
  3. COPEGUS [Suspect]
     Indication: HEPATIC CIRRHOSIS
     Dosage: 1 G, QD
     Dates: start: 20130411, end: 20130620

REACTIONS (1)
  - Bronchopulmonary aspergillosis [Unknown]
